FAERS Safety Report 7330881-3 (Version None)
Quarter: 2011Q1

REPORT INFORMATION
  Report Type: 
  Country: None (occurrence: None)
  Receive Date: 20110225
  Receipt Date: 20110225
  Transmission Date: 20110831
  Serious: Yes (Hospitalization)
  Sender: FDA-Public Use
  Company Number: None

PATIENT
  Sex: Male
  Weight: 87 kg

DRUGS (2)
  1. CISPLATIN [Suspect]
     Dosage: 75 MG
     Dates: end: 20101115
  2. GEMCITABINE HYDROCHLORIDE [Suspect]
     Dosage: 4800 MG
     Dates: end: 20101122

REACTIONS (6)
  - FATIGUE [None]
  - NEUROLOGICAL SYMPTOM [None]
  - METASTASES TO CENTRAL NERVOUS SYSTEM [None]
  - LEUKOPENIA [None]
  - ANAEMIA [None]
  - PYREXIA [None]
